FAERS Safety Report 9456365 (Version 1)
Quarter: 2013Q3

REPORT INFORMATION
  Report Type: Spontaneous
  Country: US (occurrence: US)
  Receive Date: 20130813
  Receipt Date: 20130813
  Transmission Date: 20140515
  Serious: Yes (Hospitalization)
  Sender: FDA-Public Use
  Company Number: US-ASTRAZENECA-2013SE61368

PATIENT
  Age: 83 Year
  Sex: Female
  Weight: 59 kg

DRUGS (2)
  1. NEXIUM [Suspect]
     Indication: HYPERCHLORHYDRIA
     Route: 048
     Dates: start: 2001
  2. VITAMINS [Concomitant]

REACTIONS (3)
  - Chest discomfort [Recovered/Resolved]
  - Limb discomfort [Recovered/Resolved]
  - Drug dose omission [Unknown]
